FAERS Safety Report 5765783-7 (Version None)
Quarter: 2008Q2

REPORT INFORMATION
  Report Type: 
  Country: None (occurrence: None)
  Receive Date: 20080610
  Receipt Date: 20080610
  Transmission Date: 20081010
  Serious: No
  Sender: FDA-Public Use
  Company Number: None

PATIENT
  Sex: Male

DRUGS (1)
  1. LISTERINE, 500 ML (PLASTIC BOTTLE), MCNEIL PPC [Suspect]

REACTIONS (3)
  - NECROSIS [None]
  - ORAL MUCOSAL EXFOLIATION [None]
  - THERAPY NAIVE [None]
